FAERS Safety Report 4948326-7 (Version None)
Quarter: 2006Q1

REPORT INFORMATION
  Report Type: 
  Country: None (occurrence: None)
  Receive Date: 20060320
  Receipt Date: 20060209
  Transmission Date: 20060701
  Serious: Yes (Life-Threatening)
  Sender: FDA-Public Use
  Company Number: JP-ROCHE-435775

PATIENT
  Age: 86 Year
  Sex: Female

DRUGS (15)
  1. PANALDINE [Suspect]
     Indication: THROMBOSIS PROPHYLAXIS
     Route: 048
     Dates: start: 20050421, end: 20050519
  2. ASPIRIN [Suspect]
     Indication: ACUTE MYOCARDIAL INFARCTION
     Route: 048
     Dates: start: 20050421, end: 20050509
  3. ASPIRIN [Suspect]
     Route: 048
     Dates: start: 20050510
  4. SIGMART [Suspect]
     Indication: ACUTE MYOCARDIAL INFARCTION
     Route: 048
     Dates: start: 20050421, end: 20050511
  5. OMEPRAL [Suspect]
     Indication: ACUTE MYOCARDIAL INFARCTION
     Route: 048
     Dates: start: 20050421, end: 20050429
  6. MAGNESIUM OXIDE [Suspect]
     Indication: CONSTIPATION
     Dosage: REPORTED AS KAMAG G
     Route: 048
     Dates: start: 20050421, end: 20050511
  7. LASIX [Suspect]
     Route: 048
     Dates: start: 20050426, end: 20050504
  8. LASIX [Suspect]
     Route: 048
     Dates: start: 20050505, end: 20050531
  9. CALCIUM POLYSTYRENE SULFONATE [Suspect]
     Route: 048
     Dates: start: 20050510, end: 20050531
  10. PLETAL [Suspect]
     Indication: DRUG USE FOR UNKNOWN INDICATION
     Route: 048
     Dates: start: 20050520, end: 20050524
  11. RENIVACE [Suspect]
     Indication: HYPERTENSION
     Route: 048
     Dates: end: 20050531
  12. NORVASC [Suspect]
     Indication: HYPERTENSION
     Route: 048
     Dates: end: 20050531
  13. DILTIAZEM HYDROCHLORIDE [Suspect]
     Indication: HYPERTENSION
     Route: 048
     Dates: end: 20050531
  14. FLUCAM [Suspect]
     Indication: DRUG USE FOR UNKNOWN INDICATION
     Route: 048
     Dates: end: 20050531
  15. ROCALTROL [Suspect]
     Indication: DRUG USE FOR UNKNOWN INDICATION
     Route: 048
     Dates: end: 20050531

REACTIONS (6)
  - DEPRESSED LEVEL OF CONSCIOUSNESS [None]
  - HEPATITIS FULMINANT [None]
  - JAUNDICE [None]
  - LIVER DISORDER [None]
  - ORAL INTAKE REDUCED [None]
  - PRURITUS GENERALISED [None]
